FAERS Safety Report 8617507-3 (Version None)
Quarter: 2012Q3

REPORT INFORMATION
  Report Type: 
  Country: None (occurrence: None)
  Receive Date: 20120824
  Receipt Date: 20111103
  Transmission Date: 20120928
  Serious: No
  Sender: FDA-Public Use
  Company Number: US-ASTRAZENECA-2011SE66729

PATIENT
  Sex: Male

DRUGS (2)
  1. SYMBICORT [Suspect]
     Dosage: 160/4.5 MICROGRAMS,1 PUFF EVERY DAY
     Route: 055
  2. SYMBICORT [Suspect]
     Dosage: 160/4.5 MICROGRAMS,2 PUFFS EVERY DAY
     Route: 055

REACTIONS (2)
  - ADVERSE DRUG REACTION [None]
  - OFF LABEL USE [None]
